FAERS Safety Report 21787268 (Version 1)
Quarter: 2022Q4

REPORT INFORMATION
  Report Type: Spontaneous
  Country: US (occurrence: US)
  Receive Date: 20221228
  Receipt Date: 20221228
  Transmission Date: 20230112
  Serious: No
  Sender: FDA-Public Use
  Company Number: US-BoehringerIngelheim-2022-BI-210002

PATIENT
  Age: 90 Year
  Sex: Female

DRUGS (4)
  1. OFEV [Suspect]
     Active Substance: NINTEDANIB
     Indication: Idiopathic pulmonary fibrosis
     Dates: start: 20221031
  2. OFEV [Suspect]
     Active Substance: NINTEDANIB
     Dosage: 150MG 4 DAYS A WEEK 150
     Dates: start: 202211
  3. OFEV [Suspect]
     Active Substance: NINTEDANIB
     Dosage: 150MG 5 DAYS A WEEK
     Dates: start: 202211
  4. OFEV [Suspect]
     Active Substance: NINTEDANIB
     Dosage: 150MG 7 DAYS A WEEK

REACTIONS (4)
  - Weight decreased [Unknown]
  - Decreased appetite [Unknown]
  - Diarrhoea [Recovering/Resolving]
  - Product use issue [Unknown]

NARRATIVE: CASE EVENT DATE: 20220101
